FAERS Safety Report 9566067 (Version 2)
Quarter: 2014Q1

REPORT INFORMATION
  Report Type: Spontaneous
  Country: US (occurrence: US)
  Receive Date: 20130930
  Receipt Date: 20140130
  Transmission Date: 20141002
  Serious: Yes (Death, Hospitalization, Other)
  Sender: FDA-Public Use
  Company Number: US-B.I. PHARMACEUTICALS,INC./RIDGEFIELD-2013-BI-30301BP

PATIENT
  Age: 80 Year
  Sex: Female
  Weight: 63.5 kg

DRUGS (11)
  1. PRADAXA [Suspect]
     Indication: ATRIAL FIBRILLATION
     Dosage: 300 MG
     Route: 048
     Dates: end: 20130114
  2. FLONASE [Concomitant]
     Route: 048
  3. LASIX [Concomitant]
     Dosage: 20 MG
     Route: 048
  4. CALTRATE [Concomitant]
     Dosage: 1500 MG
     Route: 048
  5. CORDARONE [Concomitant]
     Dosage: 400 MG
     Route: 048
  6. AMBIEN [Concomitant]
     Route: 048
  7. PRINIVIL [Concomitant]
     Dosage: 2.5 MG
     Route: 048
  8. CENTRUM SILVER [Concomitant]
     Route: 048
  9. VITAMIN D3 [Concomitant]
     Dosage: 2000 U
     Route: 048
  10. LIPITOR [Concomitant]
     Route: 048
  11. TOPROL XL [Concomitant]
     Route: 048

REACTIONS (5)
  - Gastrointestinal haemorrhage [Fatal]
  - Haemorrhagic anaemia [Unknown]
  - Coagulopathy [Unknown]
  - Thrombocytopenia [Unknown]
  - Shock haemorrhagic [Unknown]
